FAERS Safety Report 6060821-9 (Version None)
Quarter: 2009Q1

REPORT INFORMATION
  Report Type: 
  Country: None (occurrence: None)
  Receive Date: 20090202
  Receipt Date: 20090129
  Transmission Date: 20090719
  Serious: Yes (Death, Other)
  Sender: FDA-Public Use
  Company Number: PHHY2009NO03311

PATIENT
  Sex: Male

DRUGS (6)
  1. LEPONEX [Suspect]
     Indication: SCHIZOPHRENIA, PARANOID TYPE
     Dosage: 150 MG X 2, VARIABLE DOSE
     Route: 048
     Dates: start: 20060601
  2. LAMICTAL [Concomitant]
     Dosage: 50 MG/DAY
     Route: 048
  3. ZOPICLONE [Concomitant]
     Dosage: 7.5 MG, PRN
  4. LARGACTIL [Concomitant]
     Dosage: 50 MG/DAY
     Route: 048
  5. ZYPREXA [Concomitant]
     Dosage: 10 MG/DAY
     Route: 048
  6. VALLERGAN [Concomitant]
     Dosage: 10 MG/DAY
     Route: 048

REACTIONS (5)
  - ANXIETY [None]
  - DRUG LEVEL INCREASED [None]
  - RESUSCITATION [None]
  - SALIVARY HYPERSECRETION [None]
  - SUDDEN DEATH [None]
